FAERS Safety Report 13942208 (Version 2)
Quarter: 2017Q4

REPORT INFORMATION
  Report Type: Spontaneous
  Country: US (occurrence: US)
  Receive Date: 20170907
  Receipt Date: 20171219
  Transmission Date: 20180320
  Serious: Yes (Disabling, Other)
  Sender: FDA-Public Use
  Company Number: US-REGENERON PHARMACEUTICALS, INC.-2017-21268

PATIENT

DRUGS (2)
  1. EYLEA [Suspect]
     Active Substance: AFLIBERCEPT
     Dosage: 2 MG, RIGHT EYE, LAST DOSE
     Route: 031
     Dates: start: 20170627, end: 20170627
  2. EYLEA [Suspect]
     Active Substance: AFLIBERCEPT
     Indication: NEOVASCULAR AGE-RELATED MACULAR DEGENERATION
     Dosage: 2 MG, BLITERAL EYES
     Route: 031
     Dates: start: 20151103

REACTIONS (5)
  - Blindness unilateral [Unknown]
  - Inadequate aseptic technique in use of product [Unknown]
  - Blindness transient [Recovered/Resolved]
  - Intraocular pressure increased [Unknown]
  - Uveitis [Recovered/Resolved]

NARRATIVE: CASE EVENT DATE: 20170626
